FAERS Safety Report 16007151 (Version 1)
Quarter: 2019Q1

REPORT INFORMATION
  Report Type: Spontaneous
  Country: GB (occurrence: GB)
  Receive Date: 20190226
  Receipt Date: 20190226
  Transmission Date: 20190418
  Serious: Yes (Disabling, Other)
  Sender: FDA-Public Use
  Company Number: GB-MYLANLABS-2019M1016172

PATIENT
  Age: 36 Year
  Sex: Female
  Weight: 50.8 kg

DRUGS (1)
  1. GABAPENTIN. [Suspect]
     Active Substance: GABAPENTIN
     Indication: PAIN
     Dosage: 100 MILLIGRAM
     Route: 048
     Dates: start: 20170804, end: 20170818

REACTIONS (3)
  - Condition aggravated [Recovered/Resolved with Sequelae]
  - Diplopia [Recovered/Resolved with Sequelae]
  - Gaze palsy [Recovered/Resolved with Sequelae]
